FAERS Safety Report 21483030 (Version 1)
Quarter: 2022Q4

REPORT INFORMATION
  Report Type: Spontaneous
  Country: PK (occurrence: PK)
  Receive Date: 20221020
  Receipt Date: 20221020
  Transmission Date: 20230113
  Serious: Yes (Other)
  Sender: FDA-Public Use
  Company Number: PK-PFIZER INC-2020222172

PATIENT
  Age: 17 Year
  Sex: Male
  Weight: 46 kg

DRUGS (8)
  1. ENBREL [Suspect]
     Active Substance: ETANERCEPT
     Indication: Rheumatoid arthritis
     Dosage: 50 MG, EVERY 2 WEEKS
     Route: 058
     Dates: start: 202005
  2. ENBREL [Suspect]
     Active Substance: ETANERCEPT
     Dosage: 50 MG, EVERY TWO WEEKS
     Route: 065
     Dates: start: 202011
  3. ENBREL [Suspect]
     Active Substance: ETANERCEPT
     Dosage: 50 MG, WEEKLY
     Route: 058
     Dates: start: 20200615, end: 202205
  4. ENBREL [Suspect]
     Active Substance: ETANERCEPT
     Dosage: 50 MG, WEEKLY
     Route: 058
     Dates: start: 20220816
  5. LEFLUNOMIDE [Concomitant]
     Active Substance: LEFLUNOMIDE
     Dosage: 1 DF, DAILY
  6. FOLIC ACID [Concomitant]
     Active Substance: FOLIC ACID
     Dosage: 1 DF, 2X/WEEK
  7. Proxen [Concomitant]
     Dosage: UNK
  8. Sunny d [Concomitant]
     Dosage: UNK

REACTIONS (8)
  - Arthralgia [Unknown]
  - Proteinuria [Unknown]
  - Disease recurrence [Unknown]
  - Condition aggravated [Unknown]
  - Infection [Unknown]
  - Ocular hyperaemia [Unknown]
  - Off label use [Unknown]
  - Product dose omission issue [Unknown]
